FAERS Safety Report 9833500 (Version 2)
Quarter: 2014Q1

REPORT INFORMATION
  Report Type: Spontaneous
  Country: FR (occurrence: FR)
  Receive Date: 20140122
  Receipt Date: 20140122
  Transmission Date: 20141002
  Serious: Yes (Other)
  Sender: FDA-Public Use
  Company Number: FR-ROCHE-1114869

PATIENT
  Age: 43 Year
  Sex: Male

DRUGS (1)
  1. RIVOTRIL [Suspect]
     Indication: DYSAESTHESIA
     Route: 048
     Dates: start: 2006, end: 201204

REACTIONS (9)
  - Withdrawal syndrome [Unknown]
  - Asthenia [Unknown]
  - Head discomfort [Unknown]
  - Tinnitus [Unknown]
  - Dizziness [Unknown]
  - Hypoaesthesia [Unknown]
  - Respiratory arrest [Unknown]
  - Stress [Unknown]
  - Anxiety [Unknown]
